FAERS Safety Report 4733329-8 (Version None)
Quarter: 2005Q3

REPORT INFORMATION
  Report Type: 
  Country: None (occurrence: None)
  Receive Date: 20050801
  Receipt Date: 20050801
  Transmission Date: 20060218
  Serious: Yes (Other)
  Sender: FDA-Public Use
  Company Number: None

PATIENT
  Age: 64 Year
  Sex: Male

DRUGS (4)
  1. LACTATED RINGER'S [Suspect]
     Dates: start: 20050630
  2. PROPOFOL [Concomitant]
  3. FENTANYL [Concomitant]
  4. LIDOCAINE [Concomitant]

REACTIONS (4)
  - BLOOD PRESSURE DECREASED [None]
  - DYSGEUSIA [None]
  - HEART RATE DECREASED [None]
  - SYNCOPE VASOVAGAL [None]
